FAERS Safety Report 6416990-1 (Version None)
Quarter: 2009Q4

REPORT INFORMATION
  Report Type: 
  Country: None (occurrence: None)
  Receive Date: 20091027
  Receipt Date: 20090716
  Transmission Date: 20100525
  Serious: No
  Sender: FDA-Public Use
  Company Number: US-ALLERGAN-0909998US

PATIENT
  Age: 64 Year
  Sex: Female

DRUGS (1)
  1. ALPHAGAN P [Suspect]
     Indication: GLAUCOMA
     Dosage: 1 GTT, BID
     Route: 047
     Dates: start: 20090714, end: 20090715

REACTIONS (4)
  - DIZZINESS [None]
  - HALLUCINATION [None]
  - HEADACHE [None]
  - NAUSEA [None]
